FAERS Safety Report 5463417-2 (Version None)
Quarter: 2007Q3

REPORT INFORMATION
  Report Type: 
  Country: None (occurrence: None)
  Receive Date: 20070920
  Receipt Date: 20070911
  Transmission Date: 20080115
  Serious: Yes (Hospitalization)
  Sender: FDA-Public Use
  Company Number: US-KINGPHARMUSA00001-K200701165

PATIENT

DRUGS (8)
  1. ALTACE [Suspect]
     Indication: HYPERTENSION
     Dosage: 2.5 MG, QD
     Route: 048
     Dates: start: 20070622, end: 20070714
  2. LASILIX  /00032601/ [Suspect]
     Indication: OEDEMA
     Dosage: 40 MG, QD
     Route: 048
     Dates: start: 20070622, end: 20070711
  3. LASILIX  /00032601/ [Suspect]
     Indication: CARDIAC FAILURE
  4. ALDACTONE [Suspect]
     Indication: OEDEMA
     Dosage: 75 MG, QD
     Route: 048
     Dates: start: 20070622, end: 20070711
  5. DIFFUK [Suspect]
     Indication: DIURETIC THERAPY
     Dosage: 2400 MG, QD
     Route: 048
     Dates: start: 20070622, end: 20070723
  6. LANTUS [Concomitant]
     Indication: TYPE 2 DIABETES MELLITUS
     Route: 058
  7. PREVISCAN   /00789001/ [Concomitant]
     Indication: VENTRICULAR FIBRILLATION
     Route: 048
  8. MONO-TILDIEM [Concomitant]

REACTIONS (2)
  - HYPOKALAEMIA [None]
  - HYPONATRAEMIA [None]
